FAERS Safety Report 17847623 (Version 1)
Quarter: 2020Q2

REPORT INFORMATION
  Report Type: Spontaneous
  Country: GB (occurrence: GB)
  Receive Date: 20200601
  Receipt Date: 20200601
  Transmission Date: 20200714
  Serious: Yes (Other)
  Sender: FDA-Public Use
  Company Number: GB-JNJFOC-20200529580

PATIENT
  Age: 83 Year
  Sex: Male
  Weight: 101 kg

DRUGS (22)
  1. CLARITHROMYCIN. [Concomitant]
     Active Substance: CLARITHROMYCIN
     Dosage: 1 DF, BID
     Dates: start: 20200420, end: 20200427
  2. CARBIMAZOLE [Concomitant]
     Active Substance: CARBIMAZOLE
     Dates: start: 20190523
  3. OCTENISAN CLEANING [Concomitant]
     Dosage: USE FOR BATHING OR SHOWERING FOR 5 DAYS, ...
     Dates: start: 20200306, end: 20200311
  4. SALBUTAMOL [Concomitant]
     Active Substance: ALBUTEROL
     Dosage: 2 DF, PRN
     Route: 055
     Dates: start: 20151214
  5. LISINOPRIL. [Concomitant]
     Active Substance: LISINOPRIL
     Dates: start: 20190523
  6. XARELTO [Suspect]
     Active Substance: RIVAROXABAN
     Indication: PRODUCT USED FOR UNKNOWN INDICATION
     Dosage: TAKE WITH FOOD
     Route: 048
     Dates: start: 20200420
  7. WARFARIN SODIUM. [Concomitant]
     Active Substance: WARFARIN SODIUM
     Dosage: TAKE AS DIRECTED BY ANTICOAGULANT CLINIC
     Dates: start: 20150213, end: 20200420
  8. HUMALOG [Concomitant]
     Active Substance: INSULIN LISPRO
     Dosage: USE AS DIRECTED
     Dates: start: 20160126
  9. DOXYCYCLINE. [Concomitant]
     Active Substance: DOXYCYCLINE
     Dosage: TAKE 2 ON THE FIRST DAY THEN ONE DAILY FOR 4 DAYS
     Dates: start: 20200430
  10. FLUTIFORM [Concomitant]
     Active Substance: FLUTICASONE PROPIONATE\FORMOTEROL FUMARATE
     Dosage: PUFFS  (ISSUED AS FOSTAIR IS OUT...
     Dates: start: 20200422
  11. ALFACALCIDOL [Concomitant]
     Active Substance: ALFACALCIDOL
     Dosage: (TOTAL DOSE...
     Dates: start: 20190809
  12. BETAMETHASONE VALERATE. [Concomitant]
     Active Substance: BETAMETHASONE VALERATE
     Dosage: APPLY THINLY 1-2 TIMES DAILY
     Dates: start: 20200420
  13. PREDNISOLONE. [Concomitant]
     Active Substance: PREDNISOLONE
     Dosage: TAKE EACH MORNING FOR CHEST EXACERBATION
     Dates: start: 20200430
  14. BUMETANIDE. [Concomitant]
     Active Substance: BUMETANIDE
     Dosage: TAKE AT BREAKFAST AND AT LUCHTIME
     Dates: start: 20151231
  15. LINAGLIPTIN [Concomitant]
     Active Substance: LINAGLIPTIN
     Dates: start: 20160112
  16. OMEPRAZOLE. [Concomitant]
     Active Substance: OMEPRAZOLE
     Indication: GASTROINTESTINAL DISORDER PROPHYLAXIS
     Dosage: TAKE WHEN TAKING W...
     Dates: start: 20190516
  17. DOUBLEBASE [Concomitant]
     Active Substance: ISOPROPYL MYRISTATE\PARAFFIN
     Dosage: UNK UNK, PRN
     Dates: start: 20200217, end: 20200316
  18. FOSTAIR [Concomitant]
     Active Substance: BECLOMETHASONE\FORMOTEROL
     Dosage: PUFF (ISSUES AS FOSTAIR 100 IS ...
     Dates: start: 20170428
  19. BISOPROLOL [Concomitant]
     Active Substance: BISOPROLOL
     Dates: start: 20150115
  20. CLOBETASONE BUTYRATE [Concomitant]
     Active Substance: CLOBETASONE BUTYRATE
     Dosage: APPLY 1-2 TIMES/DAY
     Dates: start: 20200413
  21. HUMULIN L [Concomitant]
     Active Substance: INSULIN HUMAN
     Dosage: USE AS DIRECTED
     Dates: start: 20160222
  22. MUPIROCIN. [Concomitant]
     Active Substance: MUPIROCIN
     Dosage: APPLY TO NOSE FOR 5 DAYS
     Dates: start: 20200306, end: 20200311

REACTIONS (1)
  - Rash [Not Recovered/Not Resolved]

NARRATIVE: CASE EVENT DATE: 20200504
